FAERS Safety Report 7572397-5 (Version None)
Quarter: 2011Q2

REPORT INFORMATION
  Report Type: 
  Country: None (occurrence: None)
  Receive Date: 20110624
  Receipt Date: 20110621
  Transmission Date: 20111010
  Serious: Yes (Hospitalization)
  Sender: FDA-Public Use
  Company Number: PHHO2011MX09670

PATIENT
  Sex: Male
  Weight: 46.1 kg

DRUGS (11)
  1. CERTICAN [Suspect]
     Indication: RENAL TRANSPLANT
     Dosage: 1.5 MG, BID
     Route: 048
     Dates: start: 20110518
  2. PROGRAF [Suspect]
     Indication: RENAL TRANSPLANT
     Dosage: 3 MG, BID
     Route: 048
     Dates: start: 20110518, end: 20110524
  3. PREDNISONE [Concomitant]
     Indication: IMMUNOSUPPRESSION
     Dosage: 5 MG, QD
     Route: 048
     Dates: start: 20110507
  4. OMEPRAZOLE [Concomitant]
     Indication: ANTACID THERAPY
     Dosage: 20 MG, QD
     Route: 048
     Dates: start: 20110302, end: 20110405
  5. PROGRAF [Suspect]
     Dosage: 2 MG, BID
     Route: 048
     Dates: start: 20110525
  6. VALGANCICLOVIR [Concomitant]
     Indication: ANTIVIRAL PROPHYLAXIS
     Dosage: 900 MG, QD
     Route: 048
     Dates: start: 20110223, end: 20110529
  7. NISTATIN [Concomitant]
     Indication: INFECTION
     Dosage: 10 ML, QD
     Route: 061
  8. MYFORTIC [Suspect]
     Indication: IMMUNOSUPPRESSION
     Dosage: 720 MG, BID
     Route: 048
     Dates: start: 20110223, end: 20110524
  9. AMOXICILLIN [Concomitant]
     Indication: INFECTION
     Dosage: 1.5 G, QD
     Route: 048
     Dates: start: 20110527
  10. MYFORTIC [Suspect]
     Dosage: 360 MG, BID
     Route: 048
     Dates: start: 20110525
  11. CLINDAMYCIN [Concomitant]
     Indication: INFECTION
     Dosage: 600 MG, QD
     Route: 048
     Dates: start: 20110527

REACTIONS (5)
  - LEUKOPENIA [None]
  - TREMOR [None]
  - PYREXIA [None]
  - FUNGAL INFECTION [None]
  - MOUTH ULCERATION [None]
